FAERS Safety Report 12650388 (Version 3)
Quarter: 2016Q4

REPORT INFORMATION
  Report Type: Spontaneous
  Country: US (occurrence: US)
  Receive Date: 20160814
  Receipt Date: 20161007
  Transmission Date: 20170207
  Serious: No
  Sender: FDA-Public Use
  Company Number: US-BEH-2016072499

PATIENT
  Age: 11 Year
  Sex: Female
  Weight: 34.14 kg

DRUGS (7)
  1. HIZENTRA [Suspect]
     Active Substance: HUMAN IMMUNOGLOBULIN G
     Indication: HYPOGAMMAGLOBULINAEMIA
     Dosage: 8 G, QOW
     Route: 058
     Dates: start: 20160114
  2. EPIPEN [Concomitant]
     Active Substance: EPINEPHRINE
  3. PROBIOTIC                          /06395501/ [Concomitant]
     Active Substance: BIFIDOBACTERIUM ANIMALIS SUBSP. LACTIS
  4. MULTIVITAMIN                       /00097801/ [Concomitant]
     Active Substance: VITAMINS
  5. LIDOCAINE. [Concomitant]
     Active Substance: LIDOCAINE
  6. FISH OIL [Concomitant]
     Active Substance: FISH OIL
  7. METHYLPHENIDATE. [Concomitant]
     Active Substance: METHYLPHENIDATE

REACTIONS (6)
  - Hypersomnia [Unknown]
  - Vomiting [Unknown]
  - Vomiting [Unknown]
  - Hypersomnia [Unknown]
  - Vomiting [Unknown]
  - Hypersomnia [Unknown]

NARRATIVE: CASE EVENT DATE: 20160313
